FAERS Safety Report 21799508 (Version 1)
Quarter: 2022Q4

REPORT INFORMATION
  Report Type: Spontaneous
  Country: US (occurrence: None)
  Receive Date: 20221229
  Receipt Date: 20221229
  Transmission Date: 20230113
  Serious: Yes (Hospitalization)
  Sender: FDA-Public Use
  Company Number: None

PATIENT
  Age: 63 Year
  Sex: Male

DRUGS (3)
  1. AMBRISENTAN [Suspect]
     Active Substance: AMBRISENTAN
     Indication: Pulmonary hypertension
     Dosage: FREQUENCY : DAILY;?
     Route: 048
     Dates: start: 20210315, end: 20221228
  2. SILDENAFIL [Concomitant]
     Active Substance: SILDENAFIL
  3. BISOPROLOL [Concomitant]
     Active Substance: BISOPROLOL

REACTIONS (6)
  - Dyspnoea [None]
  - Hypotension [None]
  - Dialysis [None]
  - Asthenia [None]
  - Fatigue [None]
  - Disease recurrence [None]

NARRATIVE: CASE EVENT DATE: 20221228
